FAERS Safety Report 22279001 (Version 3)
Quarter: 2023Q2

REPORT INFORMATION
  Report Type: Other
  Country: GB (occurrence: GB)
  Receive Date: 20230503
  Receipt Date: 20230530
  Transmission Date: 20230722
  Serious: Yes (Life-Threatening, Hospitalization, Disabling, Other)
  Sender: FDA-Public Use
  Company Number: None

PATIENT
  Age: 15 Year
  Sex: Male

DRUGS (13)
  1. LEVETIRACETAM [Suspect]
     Active Substance: LEVETIRACETAM
     Indication: Seizure
     Dosage: 1000 MG, QD
     Route: 065
     Dates: start: 20160429, end: 20170423
  2. LEVETIRACETAM [Suspect]
     Active Substance: LEVETIRACETAM
     Dosage: UNK, MAXIMUM DOSE 2000 MG PER DAILY
     Route: 065
     Dates: start: 20180616, end: 20190101
  3. CARBAMAZEPINE [Suspect]
     Active Substance: CARBAMAZEPINE
     Indication: Seizure
     Dosage: 200 MG, QD
     Route: 065
     Dates: start: 20160312, end: 20160429
  4. CLOBAZAM [Suspect]
     Active Substance: CLOBAZAM
     Indication: Seizure
     Dosage: UNK, MAXIMUM DOSE 20 MG PER DAILY
     Route: 065
     Dates: start: 20180609, end: 20190416
  5. LACOSAMIDE [Suspect]
     Active Substance: LACOSAMIDE
     Indication: Seizure
     Dosage: 300 MG, QD
     Route: 065
     Dates: start: 20180208, end: 20180811
  6. LAMOTRIGINE [Suspect]
     Active Substance: LAMOTRIGINE
     Indication: Seizure
     Dosage: UNK, MAXIMUM DOSE 250 MG PER DAILY
     Route: 065
     Dates: start: 20161012, end: 20180606
  7. PHENYTOIN [Suspect]
     Active Substance: PHENYTOIN
     Indication: Partial seizures
     Dosage: 250 MG, QD
     Route: 065
     Dates: start: 20180612, end: 20200625
  8. VALPROATE SODIUM [Suspect]
     Active Substance: VALPROATE SODIUM
     Indication: Seizure
     Dosage: UNK, MAX DOSE 1200 MG PER DAILY
     Route: 065
     Dates: start: 20160429, end: 20160911
  9. VALPROATE SODIUM [Suspect]
     Active Substance: VALPROATE SODIUM
     Dosage: 250 MG, QD
     Route: 065
     Dates: start: 20180612, end: 20200625
  10. VALPROATE SODIUM [Suspect]
     Active Substance: VALPROATE SODIUM
     Dosage: 1000 MG, QD
     Route: 065
     Dates: start: 20160429, end: 20170423
  11. VALPROATE SODIUM [Suspect]
     Active Substance: VALPROATE SODIUM
     Dosage: 20 MG, QD (MAXIMUM  DOSE)
     Route: 065
     Dates: start: 20180609, end: 20190416
  12. VALPROATE SODIUM [Suspect]
     Active Substance: VALPROATE SODIUM
     Dosage: 200 MG, QD
     Route: 065
     Dates: start: 20160312, end: 20160429
  13. VALPROATE SODIUM [Suspect]
     Active Substance: VALPROATE SODIUM
     Dosage: 2000 MG, QD
     Route: 065
     Dates: start: 20180616, end: 20190101

REACTIONS (4)
  - Seizure [Recovered/Resolved]
  - Memory impairment [Recovered/Resolved]
  - Fatigue [Recovered/Resolved]
  - Medication error [Unknown]

NARRATIVE: CASE EVENT DATE: 20180812
